FAERS Safety Report 7391645-8 (Version None)
Quarter: 2011Q2

REPORT INFORMATION
  Report Type: 
  Country: None (occurrence: None)
  Receive Date: 20110404
  Receipt Date: 20110325
  Transmission Date: 20111010
  Serious: Yes (Other)
  Sender: FDA-Public Use
  Company Number: US-AMGEN-USASP2011016224

PATIENT
  Sex: Female

DRUGS (1)
  1. ENBREL [Suspect]
     Indication: GUTTATE PSORIASIS
     Dosage: 50 MG, QWK
     Dates: start: 20091110, end: 20110211

REACTIONS (16)
  - COUGH [None]
  - HEADACHE [None]
  - FATIGUE [None]
  - PHOTOPHOBIA [None]
  - ARTHRALGIA [None]
  - DEPRESSION [None]
  - BRADYPHRENIA [None]
  - DIARRHOEA [None]
  - SYNCOPE [None]
  - ANXIETY [None]
  - HYPERHIDROSIS [None]
  - CHILLS [None]
  - INFLUENZA [None]
  - SINUSITIS [None]
  - FEELING ABNORMAL [None]
  - RASH [None]
